FAERS Safety Report 8263113-2 (Version None)
Quarter: 2012Q1

REPORT INFORMATION
  Report Type: 
  Country: None (occurrence: None)
  Receive Date: 20120327
  Receipt Date: 20090217
  Transmission Date: 20120608
  Serious: Yes (Other)
  Sender: FDA-Public Use
  Company Number: PHEH2008US09275

PATIENT
  Age: 17 Year
  Sex: Male

DRUGS (1)
  1. GLEEVEC [Suspect]
     Indication: CHRONIC MYELOID LEUKAEMIA
     Dosage: 400 MG,QD, ORAL
     Route: 048
     Dates: start: 20060701

REACTIONS (5)
  - BONE PAIN [None]
  - WEIGHT BEARING DIFFICULTY [None]
  - BONE GRAFT [None]
  - NUCLEAR MAGNETIC RESONANCE IMAGING [None]
  - OSTEONECROSIS [None]
